FAERS Safety Report 15545649 (Version 1)
Quarter: 2018Q4

REPORT INFORMATION
  Report Type: Spontaneous
  Country: US (occurrence: US)
  Receive Date: 20181017
  Receipt Date: 20181017
  Transmission Date: 20190205
  Serious: Yes (Other)
  Sender: FDA-Public Use
  Company Number: None

PATIENT
  Age: 48 Year
  Weight: 83.91 kg

DRUGS (1)
  1. SERTRALINE HCL [Suspect]
     Active Substance: SERTRALINE HYDROCHLORIDE
     Indication: DEPRESSION
     Route: 048
     Dates: start: 20180815

REACTIONS (4)
  - Product substitution issue [None]
  - Drug ineffective [None]
  - Rash generalised [None]
  - Rash erythematous [None]

NARRATIVE: CASE EVENT DATE: 20180815
